FAERS Safety Report 5295972-X (Version None)
Quarter: 2007Q2

REPORT INFORMATION
  Report Type: 
  Country: None (occurrence: None)
  Receive Date: 20070413
  Receipt Date: 20070405
  Transmission Date: 20071010
  Serious: Yes (Hospitalization, Other)
  Sender: FDA-Public Use
  Company Number: US-ABBOTT-06P-163-0333490-00

PATIENT
  Sex: Female
  Weight: 61.29 kg

DRUGS (9)
  1. OMNICEF [Suspect]
     Indication: SKIN ULCER
     Route: 048
     Dates: start: 20060109, end: 20060121
  2. MEFLOQUINE [Concomitant]
     Indication: MALARIA PROPHYLAXIS
     Route: 048
     Dates: start: 20060109, end: 20060131
  3. MEFLOQUINE [Concomitant]
  4. MEFLOQUINE [Concomitant]
  5. MEFLOQUINE [Concomitant]
  6. MEFLOQUINE [Concomitant]
  7. MEFLOQUINE [Concomitant]
  8. ANAGRELIDE HCL [Concomitant]
     Indication: MYELOPROLIFERATIVE DISORDER
     Dates: start: 20000101
  9. ANAGRELIDE HCL [Concomitant]
     Indication: POLYCYTHAEMIA

REACTIONS (3)
  - GRAND MAL CONVULSION [None]
  - LOSS OF CONSCIOUSNESS [None]
  - MUSCLE TWITCHING [None]
